FAERS Safety Report 25558394 (Version 1)
Quarter: 2025Q3

REPORT INFORMATION
  Report Type: Report from Study
  Country: US (occurrence: US)
  Receive Date: 20250715
  Receipt Date: 20250715
  Transmission Date: 20251021
  Serious: Yes (Other)
  Sender: ABBVIE
  Company Number: US-ABBVIE-6228458

PATIENT
  Age: 66 Year
  Sex: Female

DRUGS (2)
  1. HUMIRA [Suspect]
     Active Substance: ADALIMUMAB
     Indication: Rheumatoid arthritis
     Route: 058
     Dates: start: 20200108
  2. HUMIRA [Suspect]
     Active Substance: ADALIMUMAB
     Route: 058
     Dates: start: 20250608

REACTIONS (4)
  - Nasal septum deviation [Recovering/Resolving]
  - Sinusitis [Unknown]
  - Sinus disorder [Unknown]
  - Nasal polyps [Recovering/Resolving]

NARRATIVE: CASE EVENT DATE: 20250101
